FAERS Safety Report 10516672 (Version 2)
Quarter: 2015Q1

REPORT INFORMATION
  Report Type: Report from Study
  Country: US (occurrence: US)
  Receive Date: 20141014
  Receipt Date: 20150310
  Transmission Date: 20150720
  Serious: No
  Sender: FDA-Public Use
  Company Number: US-GILEAD-2014-0118021

PATIENT
  Age: 74 Year
  Sex: Female

DRUGS (32)
  1. ADCIRCA [Concomitant]
     Active Substance: TADALAFIL
  2. SPIRONOLACTONE. [Concomitant]
     Active Substance: SPIRONOLACTONE
  3. CIPRODEX OTIC [Concomitant]
  4. NASONEX [Concomitant]
     Active Substance: MOMETASONE FUROATE
  5. FERROUS SULFATE [Concomitant]
     Active Substance: FERROUS SULFATE\FERROUS SULFATE, DRIED
  6. PRAVASTATIN [Concomitant]
     Active Substance: PRAVASTATIN\PRAVASTATIN SODIUM
  7. MULTAQ [Concomitant]
     Active Substance: DRONEDARONE
  8. LIVALO [Concomitant]
     Active Substance: PITAVASTATIN CALCIUM
  9. PULMICORT TURBUHALER [Concomitant]
     Active Substance: BUDESONIDE
  10. LEVALBUTEROL                       /01419301/ [Concomitant]
  11. AMBRISENTAN [Suspect]
     Active Substance: AMBRISENTAN
     Indication: COR PULMONALE CHRONIC
     Dosage: 10 MG, QD
     Route: 065
     Dates: start: 20140715
  12. FUROSEMIDE. [Concomitant]
     Active Substance: FUROSEMIDE
  13. PREDNISONE. [Concomitant]
     Active Substance: PREDNISONE
  14. METOPROLOL TARTRATE. [Concomitant]
     Active Substance: METOPROLOL TARTRATE
  15. LISINOPRIL. [Concomitant]
     Active Substance: LISINOPRIL
  16. PANTOPRAZOLE [Concomitant]
     Active Substance: PANTOPRAZOLE SODIUM
  17. ALBUTEROL                          /00139501/ [Concomitant]
     Active Substance: ALBUTEROL
  18. SILDENAFIL. [Concomitant]
     Active Substance: SILDENAFIL
  19. FERROUS SULFATE [Concomitant]
     Active Substance: FERROUS SULFATE\FERROUS SULFATE, DRIED
  20. IBANDRONATE SODIUM. [Concomitant]
     Active Substance: IBANDRONATE SODIUM
  21. MULTAQ [Concomitant]
     Active Substance: DRONEDARONE
  22. LIVALO [Concomitant]
     Active Substance: PITAVASTATIN CALCIUM
  23. XARELTO [Concomitant]
     Active Substance: RIVAROXABAN
  24. DULERA [Concomitant]
     Active Substance: FORMOTEROL FUMARATE DIHYDRATE\MOMETASONE FUROATE
  25. IBANDRONATE SODIUM. [Concomitant]
     Active Substance: IBANDRONATE SODIUM
  26. METOLAZONE. [Concomitant]
     Active Substance: METOLAZONE
  27. SILDENAFIL. [Concomitant]
     Active Substance: SILDENAFIL
  28. PRAVASTATIN [Concomitant]
     Active Substance: PRAVASTATIN\PRAVASTATIN SODIUM
  29. ELIQUIS [Concomitant]
     Active Substance: APIXABAN
  30. ELIQUIS [Concomitant]
     Active Substance: APIXABAN
  31. CARTIA                             /00489702/ [Concomitant]
  32. NYSTATIN. [Concomitant]
     Active Substance: NYSTATIN

REACTIONS (2)
  - Oedema peripheral [Unknown]
  - Nasal congestion [Not Recovered/Not Resolved]

NARRATIVE: CASE EVENT DATE: 20140911
